FAERS Safety Report 18637339 (Version 1)
Quarter: 2020Q4

REPORT INFORMATION
  Report Type: Spontaneous
  Country: US (occurrence: US)
  Receive Date: 20201218
  Receipt Date: 20201218
  Transmission Date: 20210114
  Serious: No
  Sender: FDA-Public Use
  Company Number: US-REGENERON PHARMACEUTICALS, INC.-2020-70186

PATIENT

DRUGS (3)
  1. EYLEA [Suspect]
     Active Substance: AFLIBERCEPT
     Dosage: 2 MG, Q4W
     Route: 031
     Dates: start: 202004, end: 202004
  2. EYLEA [Suspect]
     Active Substance: AFLIBERCEPT
     Indication: NEOVASCULAR AGE-RELATED MACULAR DEGENERATION
     Dosage: 2 MG, Q4W
     Route: 031
     Dates: start: 202002, end: 202002
  3. EYLEA [Suspect]
     Active Substance: AFLIBERCEPT
     Dosage: 2 MG, Q4W
     Route: 031
     Dates: start: 202003, end: 202003

REACTIONS (4)
  - Eye disorder [Unknown]
  - Nausea [Unknown]
  - Injection site haemorrhage [Unknown]
  - Eye pain [Unknown]

NARRATIVE: CASE EVENT DATE: 202003
